FAERS Safety Report 21372122 (Version 1)
Quarter: 2022Q3

REPORT INFORMATION
  Report Type: Spontaneous
  Country: NP (occurrence: NP)
  Receive Date: 20220923
  Receipt Date: 20220923
  Transmission Date: 20221026
  Serious: Yes (Other)
  Sender: FDA-Public Use
  Company Number: NP-NOVARTISPH-NVSC2022NP214880

PATIENT
  Sex: Male

DRUGS (1)
  1. GLIVEC [Suspect]
     Active Substance: IMATINIB MESYLATE
     Indication: Chronic myeloid leukaemia
     Dosage: 400 MG (4 X 100MG TABLETS)
     Route: 065

REACTIONS (2)
  - Philadelphia positive acute lymphocytic leukaemia [Unknown]
  - Second primary malignancy [Unknown]
